FAERS Safety Report 21092894 (Version 1)
Quarter: 2022Q3

REPORT INFORMATION
  Report Type: Spontaneous
  Country: US (occurrence: US)
  Receive Date: 20220718
  Receipt Date: 20220718
  Transmission Date: 20221026
  Serious: Yes (Hospitalization)
  Sender: FDA-Public Use
  Company Number: US-NOVOPROD-873423

PATIENT
  Age: 82 Year
  Sex: Male

DRUGS (4)
  1. LEVEMIR [Suspect]
     Active Substance: INSULIN DETEMIR
     Indication: Product used for unknown indication
     Dosage: 40 IU, BID
     Route: 058
     Dates: start: 20090101
  2. LEVEMIR [Suspect]
     Active Substance: INSULIN DETEMIR
     Dosage: 70 IU, BID
     Route: 058
  3. NOVOLOG [Concomitant]
     Active Substance: INSULIN ASPART
     Indication: Product used for unknown indication
     Dosage: UNK
     Route: 058
     Dates: start: 20090101
  4. OZEMPIC [Concomitant]
     Active Substance: SEMAGLUTIDE
     Indication: Product used for unknown indication
     Dosage: UNK
     Route: 058
     Dates: start: 20190101

REACTIONS (4)
  - Cognitive disorder [Unknown]
  - Blood glucose increased [Recovered/Resolved]
  - Product dose omission issue [Not Recovered/Not Resolved]
  - Wrong device used [Unknown]

NARRATIVE: CASE EVENT DATE: 20211020
